FAERS Safety Report 11086256 (Version 2)
Quarter: 2015Q3

REPORT INFORMATION
  Report Type: Spontaneous
  Country: BR (occurrence: BR)
  Receive Date: 20150503
  Receipt Date: 20150701
  Transmission Date: 20151125
  Serious: Yes (Hospitalization, Other)
  Sender: FDA-Public Use
  Company Number: BR-AMGEN-BRASP2014053317

PATIENT
  Age: 54 Year
  Sex: Female
  Weight: 78 kg

DRUGS (1)
  1. ENBREL [Suspect]
     Active Substance: ETANERCEPT
     Indication: RHEUMATOID ARTHRITIS
     Dosage: 50 MG, WEEKLY
     Route: 058
     Dates: start: 201103

REACTIONS (12)
  - Stress [Not Recovered/Not Resolved]
  - Injection site movement impairment [Recovered/Resolved]
  - Incorrect route of drug administration [Recovered/Resolved]
  - Renal disorder [Not Recovered/Not Resolved]
  - Inflammation [Recovered/Resolved]
  - Liver disorder [Not Recovered/Not Resolved]
  - Hepatic pain [Not Recovered/Not Resolved]
  - Arthralgia [Recovered/Resolved]
  - Lymphangioma [Not Recovered/Not Resolved]
  - Hypokinesia [Recovered/Resolved]
  - Vomiting [Not Recovered/Not Resolved]
  - Mental disorder [Not Recovered/Not Resolved]

NARRATIVE: CASE EVENT DATE: 2012
